FAERS Safety Report 4533692-7 (Version None)
Quarter: 2004Q4

REPORT INFORMATION
  Report Type: 
  Country: None (occurrence: None)
  Receive Date: 20041221
  Receipt Date: 20041208
  Transmission Date: 20050328
  Serious: Yes (Other)
  Sender: FDA-Public Use
  Company Number: JPKYO-S-20040042

PATIENT
  Age: 48 Year
  Sex: Male

DRUGS (9)
  1. NAVELBINE [Suspect]
     Indication: NON-SMALL CELL LUNG CANCER
     Route: 042
     Dates: start: 20010605, end: 20010717
  2. CISPLATIN [Concomitant]
     Indication: NON-SMALL CELL LUNG CANCER
     Dates: start: 20010605, end: 20010710
  3. SEROTONE [Concomitant]
     Dates: start: 20010605, end: 20010710
  4. DECADRON [Concomitant]
     Dates: start: 20010710, end: 20010712
  5. CARBENIN [Concomitant]
     Dates: start: 20010628, end: 20010703
  6. VOLTAREN [Concomitant]
     Dates: start: 20010621, end: 20010629
  7. KOLANTYL GEL [Concomitant]
     Dates: start: 20010621, end: 20010629
  8. RHYTHMY [Concomitant]
     Dates: start: 20010722, end: 20010722
  9. HORIZON [Concomitant]
     Dates: start: 20010722, end: 20010722

REACTIONS (5)
  - ERYTHROPENIA [None]
  - HAEMATOCRIT DECREASED [None]
  - HAEMOGLOBIN DECREASED [None]
  - LEUKOPENIA [None]
  - NEUTROPENIA [None]
